FAERS Safety Report 14367493 (Version 2)
Quarter: 2018Q1

REPORT INFORMATION
  Report Type: Spontaneous
  Country: DE (occurrence: DE)
  Receive Date: 20180109
  Receipt Date: 20180319
  Transmission Date: 20180509
  Serious: Yes (Other)
  Sender: FDA-Public Use
  Company Number: DE-009507513-1801DEU001364

PATIENT
  Age: 38 Year

DRUGS (11)
  1. TRAPANAL [Suspect]
     Active Substance: THIOPENTAL SODIUM
     Dosage: 450 MG, UNK
     Route: 065
  2. REMIFENTANIL HYDROCHLORIDE. [Suspect]
     Active Substance: REMIFENTANIL HYDROCHLORIDE
     Indication: FOETAL EXPOSURE DURING PREGNANCY
     Dosage: 0.12 PG/KG/MIN
     Route: 064
  3. FENTANYL. [Suspect]
     Active Substance: FENTANYL
     Indication: FOETAL EXPOSURE DURING PREGNANCY
     Dosage: 0.2 MG, UNK
     Route: 064
  4. EPINEPHRINE. [Suspect]
     Active Substance: EPINEPHRINE
     Indication: FOETAL EXPOSURE DURING PREGNANCY
     Dosage: 0.01 PG/KG/MIN
     Route: 064
  5. GENTAMICIN SULFATE. [Suspect]
     Active Substance: GENTAMICIN SULFATE
     Indication: FOETAL EXPOSURE DURING PREGNANCY
     Dosage: 120 MG, UNK
     Route: 064
  6. ATOSIBAN [Suspect]
     Active Substance: ATOSIBAN
     Indication: FOETAL EXPOSURE DURING PREGNANCY
     Dosage: UNK
     Route: 064
  7. CLINDAMYCIN. [Suspect]
     Active Substance: CLINDAMYCIN
     Indication: FOETAL EXPOSURE DURING PREGNANCY
     Dosage: 600 MG, UNK
     Route: 064
  8. ROCURONIUM BROMIDE. [Suspect]
     Active Substance: ROCURONIUM BROMIDE
     Indication: FOETAL EXPOSURE DURING PREGNANCY
     Dosage: 70 MG, UNK
     Route: 064
  9. DESFLURANE. [Suspect]
     Active Substance: DESFLURANE
     Indication: FOETAL EXPOSURE DURING PREGNANCY
     Dosage: 3.9-4.6% VOL %
     Route: 064
  10. ROCURONIUM BROMIDE. [Suspect]
     Active Substance: ROCURONIUM BROMIDE
     Dosage: 10 MG, UNK
     Route: 064
  11. TRAPANAL [Suspect]
     Active Substance: THIOPENTAL SODIUM
     Indication: FOETAL EXPOSURE DURING PREGNANCY
     Dosage: 450 MG, UNK
     Route: 064

REACTIONS (2)
  - Premature baby [Unknown]
  - Foetal exposure during pregnancy [Unknown]
